FAERS Safety Report 20180992 (Version 1)
Quarter: 2021Q4

REPORT INFORMATION
  Report Type: Spontaneous
  Country: US (occurrence: None)
  Receive Date: 20211213
  Receipt Date: 20211213
  Transmission Date: 20220304
  Serious: Yes (Death)
  Sender: FDA-Public Use
  Company Number: None

PATIENT
  Age: 100 Year
  Sex: Female
  Weight: 67.4 kg

DRUGS (1)
  1. ALTEPLASE [Suspect]
     Active Substance: ALTEPLASE
     Indication: Cerebrovascular accident
     Dates: start: 20211208

REACTIONS (8)
  - Cerebral infarction [None]
  - Cerebral infarction [None]
  - Haemorrhagic cerebellar infarction [None]
  - Cerebral mass effect [None]
  - Cerebral mass effect [None]
  - Depressed level of consciousness [None]
  - Unresponsive to stimuli [None]
  - NIH stroke scale abnormal [None]
